FAERS Safety Report 12513345 (Version 3)
Quarter: 2016Q4

REPORT INFORMATION
  Report Type: Spontaneous
  Country: US (occurrence: US)
  Receive Date: 20160630
  Receipt Date: 20161212
  Transmission Date: 20170207
  Serious: Yes (Hospitalization)
  Sender: FDA-Public Use
  Company Number: US-JNJFOC-20160523282

PATIENT
  Age: 48 Year

DRUGS (2)
  1. XARELTO [Suspect]
     Active Substance: RIVAROXABAN
     Indication: LOWER LIMB FRACTURE
     Route: 048
     Dates: start: 20150301, end: 20151201
  2. XARELTO [Suspect]
     Active Substance: RIVAROXABAN
     Indication: THROMBOSIS PROPHYLAXIS
     Route: 048
     Dates: start: 20150301, end: 20151201

REACTIONS (2)
  - Gastrointestinal haemorrhage [Unknown]
  - Blood urine present [Unknown]

NARRATIVE: CASE EVENT DATE: 20151201
